FAERS Safety Report 7123925-5 (Version None)
Quarter: 2010Q4

REPORT INFORMATION
  Report Type: 
  Country: None (occurrence: None)
  Receive Date: 20101126
  Receipt Date: 20101123
  Transmission Date: 20110411
  Serious: Yes (Death)
  Sender: FDA-Public Use
  Company Number: ZA-PFIZER INC-2010156541

PATIENT
  Sex: Male

DRUGS (4)
  1. DALACIN [Suspect]
  2. ZOMETA [Concomitant]
  3. PHARMAPRESS [Concomitant]
  4. SORAFENIB [Concomitant]

REACTIONS (1)
  - DEATH [None]
